FAERS Safety Report 20149463 (Version 2)
Quarter: 2021Q4

REPORT INFORMATION
  Report Type: Report from Study
  Country: GB (occurrence: GB)
  Receive Date: 20211205
  Receipt Date: 20211227
  Transmission Date: 20220304
  Serious: No
  Sender: FDA-Public Use
  Company Number: GB-JNJFOC-20211154286

PATIENT
  Sex: Female

DRUGS (2)
  1. STELARA [Suspect]
     Active Substance: USTEKINUMAB
     Indication: Crohn^s disease
     Route: 058
  2. STELARA [Suspect]
     Active Substance: USTEKINUMAB

REACTIONS (2)
  - Syringe issue [Unknown]
  - Underdose [Unknown]
